FAERS Safety Report 12966775 (Version 1)
Quarter: 2016Q4

REPORT INFORMATION
  Report Type: Spontaneous
  Country: US (occurrence: US)
  Receive Date: 20161123
  Receipt Date: 20161123
  Transmission Date: 20170207
  Serious: Yes (Other)
  Sender: FDA-Public Use
  Company Number: US-STRIDES ARCOLAB LIMITED-2016SP017924

PATIENT

DRUGS (8)
  1. OMBITASVIR [Interacting]
     Active Substance: OMBITASVIR
     Dosage: UNK
  2. RITONAVIR. [Interacting]
     Active Substance: RITONAVIR
     Indication: CHRONIC HEPATITIS C
     Dosage: UNK
  3. TACROLIMUS. [Interacting]
     Active Substance: TACROLIMUS
     Dosage: 0.5 MG, BID
  4. OMBITASVIR [Interacting]
     Active Substance: OMBITASVIR
     Indication: CHRONIC HEPATITIS C
     Dosage: UNK
  5. DASABUVIR [Interacting]
     Active Substance: DASABUVIR
     Dosage: UNK
  6. DASABUVIR [Interacting]
     Active Substance: DASABUVIR
     Indication: CHRONIC HEPATITIS C
     Dosage: UNK
  7. TACROLIMUS. [Suspect]
     Active Substance: TACROLIMUS
     Indication: LIVER TRANSPLANT
     Dosage: 1.5 MG, QD
  8. RITONAVIR. [Interacting]
     Active Substance: RITONAVIR
     Dosage: UNK

REACTIONS (3)
  - Renal impairment [Unknown]
  - Drug interaction [Unknown]
  - Renal tubular necrosis [Unknown]
